FAERS Safety Report 16680733 (Version 7)
Quarter: 2021Q3

REPORT INFORMATION
  Report Type: Report from Study
  Country: US (occurrence: US)
  Receive Date: 20190808
  Receipt Date: 20210814
  Transmission Date: 20211014
  Serious: Yes (Death)
  Sender: FDA-Public Use
  Company Number: PHEH2019US032294

PATIENT
  Age: 71 Year
  Sex: Male

DRUGS (5)
  1. CARVEDILOL. [Concomitant]
     Active Substance: CARVEDILOL
     Route: 065
  2. FUROSEMIDE. [Suspect]
     Active Substance: FUROSEMIDE
     Indication: HYPERTENSION
     Dosage: 20 MG, UNK
     Route: 048
  3. ENTRESTO [Suspect]
     Active Substance: SACUBITRIL\VALSARTAN
     Indication: CARDIAC FAILURE
     Dosage: 1 DF(24/26 MG), BID
     Route: 048
     Dates: start: 20180706
  4. SPIRONOLACTONE. [Concomitant]
     Active Substance: SPIRONOLACTONE
     Dosage: UNK, QD
     Route: 048
  5. ENTRESTO [Suspect]
     Active Substance: SACUBITRIL\VALSARTAN
     Indication: CARDIAC FAILURE
     Dosage: 1 DF(47/51 MG), BID
     Route: 048
     Dates: start: 201810

REACTIONS (13)
  - Abdominal distension [Fatal]
  - Depression [Fatal]
  - Intentional self-injury [Fatal]
  - Mental disorder [Unknown]
  - Cardiac disorder [Recovering/Resolving]
  - Cardiac failure [Fatal]
  - Renal failure [Fatal]
  - Weight decreased [Unknown]
  - Amnesia [Fatal]
  - Hypertension [Unknown]
  - Respiratory failure [Fatal]
  - Peripheral swelling [Fatal]
  - Cough [Unknown]

NARRATIVE: CASE EVENT DATE: 20180706
